FAERS Safety Report 9836578 (Version 5)
Quarter: 2014Q3

REPORT INFORMATION
  Report Type: Spontaneous
  Country: GB (occurrence: GB)
  Receive Date: 20140123
  Receipt Date: 20140728
  Transmission Date: 20150326
  Serious: Yes (Other)
  Sender: FDA-Public Use
  Company Number: GB-JNJFOC-20130800235

PATIENT
  Sex: Female
  Weight: 85 kg

DRUGS (5)
  1. FERROUS SULFATE [Concomitant]
     Active Substance: FERROUS SULFATE\FERROUS SULFATE, DRIED
     Indication: ANAEMIA
     Route: 048
     Dates: start: 20131212
  2. BETAMETHASONE [Concomitant]
     Active Substance: BETAMETHASONE
     Indication: CHOLESTASIS
     Route: 030
     Dates: start: 20140218
  3. STELARA [Suspect]
     Active Substance: USTEKINUMAB
     Indication: PSORIASIS
     Route: 058
     Dates: end: 201304
  4. FOLIC ACID. [Concomitant]
     Active Substance: FOLIC ACID
     Indication: ANAEMIA
     Route: 048
     Dates: start: 20131213, end: 20140222
  5. VITAMIN K [Concomitant]
     Active Substance: PHYTONADIONE
     Indication: CHOLESTASIS
     Route: 048
     Dates: start: 20140218

REACTIONS (4)
  - Exposure during pregnancy [Recovered/Resolved]
  - Liver function test abnormal [Unknown]
  - Total bile acids increased [Unknown]
  - Psoriatic arthropathy [Unknown]
